FAERS Safety Report 5925586-7 (Version None)
Quarter: 2008Q4

REPORT INFORMATION
  Report Type: 
  Country: None (occurrence: None)
  Receive Date: 20081021
  Receipt Date: 20081014
  Transmission Date: 20090506
  Serious: Yes (Hospitalization, Disabling)
  Sender: FDA-Public Use
  Company Number: A0744753A

PATIENT
  Age: 54 Year
  Sex: Male
  Weight: 84.1 kg

DRUGS (5)
  1. ARIXTRA [Suspect]
     Dosage: 2.5MG SEE DOSAGE TEXT
     Route: 058
     Dates: start: 20080609, end: 20080617
  2. VANCOMYCIN HYDROCHLORIDE [Concomitant]
     Dosage: 1250MG UNKNOWN
     Route: 042
     Dates: start: 20080615, end: 20080620
  3. ZOCOR [Concomitant]
     Dosage: 40MG AT NIGHT
     Route: 048
     Dates: start: 20080609, end: 20080617
  4. PROTONIX [Concomitant]
     Dosage: 40MG AT NIGHT
     Route: 048
     Dates: start: 20080610, end: 20080624
  5. METRONIDAZOLE [Concomitant]
     Route: 042
     Dates: start: 20080616, end: 20080619

REACTIONS (10)
  - ADRENAL HAEMORRHAGE [None]
  - ADRENOCORTICAL INSUFFICIENCY ACUTE [None]
  - DEEP VEIN THROMBOSIS [None]
  - HEPARIN-INDUCED THROMBOCYTOPENIA [None]
  - HYPERGLYCAEMIA [None]
  - ILEUS [None]
  - THROMBOCYTOPENIA [None]
  - THROMBOSIS [None]
  - TRANSAMINASES DECREASED [None]
  - VENOUS THROMBOSIS [None]
